FAERS Safety Report 8353741-8 (Version None)
Quarter: 2012Q2

REPORT INFORMATION
  Report Type: 
  Country: None (occurrence: None)
  Receive Date: 20120511
  Receipt Date: 20111010
  Transmission Date: 20120825
  Serious: No
  Sender: FDA-Public Use
  Company Number: US-GLAXOSMITHKLINE-A0948891A

PATIENT
  Sex: Female

DRUGS (3)
  1. TYKERB [Suspect]
     Indication: BREAST CANCER
     Dosage: 250MG FIVE TIMES PER DAY
     Route: 065
  2. INFLUENZA VACCINE UNSPECIFIED 2011-12 SEASON [Suspect]
     Indication: PROPHYLAXIS
     Route: 065
     Dates: start: 20111001, end: 20111001
  3. INFLUENZA VACCINE [Suspect]
     Indication: PROPHYLAXIS
     Route: 065

REACTIONS (3)
  - OROPHARYNGEAL PAIN [None]
  - MALAISE [None]
  - NASOPHARYNGITIS [None]
